FAERS Safety Report 5254765-X (Version None)
Quarter: 2007Q1

REPORT INFORMATION
  Report Type: 
  Country: None (occurrence: None)
  Receive Date: 20070305
  Receipt Date: 20070226
  Transmission Date: 20070707
  Serious: Yes (Death, Hospitalization)
  Sender: FDA-Public Use
  Company Number: PL-JNJFOC-20070205861

PATIENT
  Age: 78 Year
  Sex: Male
  Weight: 70 kg

DRUGS (5)
  1. REOPRO [Suspect]
     Dosage: AN UNSPECIFIED INFUSION
     Route: 042
  2. REOPRO [Suspect]
     Indication: PERCUTANEOUS CORONARY INTERVENTION
     Route: 042
  3. ACETYLSALICYLIC ACID SRT [Concomitant]
  4. UNFRACTIONATED HEPARIN [Concomitant]
  5. CLOPIDOGREL [Concomitant]

REACTIONS (5)
  - CARDIOGENIC SHOCK [None]
  - CORONARY ARTERY DISEASE [None]
  - CORONARY ARTERY DISSECTION [None]
  - CORONARY ARTERY REOCCLUSION [None]
  - MYOCARDIAL INFARCTION [None]
